FAERS Safety Report 22308512 (Version 2)
Quarter: 2023Q2

REPORT INFORMATION
  Report Type: Report from Study
  Country: US (occurrence: US)
  Receive Date: 20230511
  Receipt Date: 20230607
  Transmission Date: 20230722
  Serious: Yes (Other)
  Sender: FDA-Public Use
  Company Number: US-002147023-NVSC2023US104078

PATIENT
  Sex: Female

DRUGS (1)
  1. KESIMPTA [Suspect]
     Active Substance: OFATUMUMAB
     Indication: Multiple sclerosis
     Dosage: UNK
     Route: 065

REACTIONS (11)
  - Multiple sclerosis [Unknown]
  - Neck pain [Unknown]
  - Paraesthesia [Unknown]
  - Insomnia [Unknown]
  - Paranasal sinus discomfort [Unknown]
  - Sinus congestion [Unknown]
  - Vibratory sense increased [Unknown]
  - Fatigue [Unknown]
  - Sinusitis [Unknown]
  - Head discomfort [Unknown]
  - Sluggishness [Unknown]
